FAERS Safety Report 18112151 (Version 1)
Quarter: 2020Q3

REPORT INFORMATION
  Report Type: Spontaneous
  Country: CN (occurrence: CN)
  Receive Date: 20200805
  Receipt Date: 20200805
  Transmission Date: 20201103
  Serious: Yes (Hospitalization)
  Sender: FDA-Public Use
  Company Number: ALC2020CN006102

PATIENT
  Age: 70 Year
  Sex: Female

DRUGS (1)
  1. ALCAINE [Suspect]
     Active Substance: PROPARACAINE HYDROCHLORIDE
     Indication: ADJUVANT THERAPY
     Dosage: 3.000000
     Route: 061
     Dates: start: 20200612, end: 20200612

REACTIONS (1)
  - Corneal oedema [Not Recovered/Not Resolved]

NARRATIVE: CASE EVENT DATE: 20200612
